FAERS Safety Report 4821343-3 (Version None)
Quarter: 2005Q4

REPORT INFORMATION
  Report Type: 
  Country: None (occurrence: None)
  Receive Date: 20051107
  Receipt Date: 20050916
  Transmission Date: 20060501
  Serious: No
  Sender: FDA-Public Use
  Company Number: US-GLAXOSMITHKLINE-A0574514A

PATIENT
  Age: 46 Year
  Sex: Male

DRUGS (6)
  1. AVANDAMET [Suspect]
     Route: 048
     Dates: start: 20050801
  2. LANTUS [Concomitant]
  3. UNKNOWN MEDICATION [Concomitant]
     Route: 065
  4. COMBIVENT [Concomitant]
  5. FLONASE [Concomitant]
  6. ALLERGY INJECTIONS [Concomitant]

REACTIONS (2)
  - COUGH [None]
  - WEIGHT DECREASED [None]
